FAERS Safety Report 4634649-8 (Version None)
Quarter: 2005Q2

REPORT INFORMATION
  Report Type: 
  Country: None (occurrence: None)
  Receive Date: 20050413
  Receipt Date: 20050413
  Transmission Date: 20051028
  Serious: Yes (Hospitalization)
  Sender: FDA-Public Use
  Company Number: None

PATIENT
  Age: 56 Year
  Sex: Male

DRUGS (3)
  1. AMIFOSTINE [Suspect]
     Indication: MUCOSAL INFLAMMATION
     Dosage: SUBCUTANEOUS;  500.0
  2. AMIFOSTINE [Suspect]
     Indication: PROPHYLAXIS
     Dosage: SUBCUTANEOUS;  500.0
  3. CISPLATIN/5-FU [Concomitant]

REACTIONS (2)
  - NAUSEA [None]
  - VOMITING [None]
